FAERS Safety Report 15735079 (Version 1)
Quarter: 2018Q4

REPORT INFORMATION
  Report Type: Spontaneous
  Country: US (occurrence: US)
  Receive Date: 20181218
  Receipt Date: 20181218
  Transmission Date: 20190205
  Serious: No
  Sender: FDA-Public Use
  Company Number: US-TEVA-2018-US-987849

PATIENT
  Sex: Female

DRUGS (1)
  1. FEXOFENADINE [Suspect]
     Active Substance: FEXOFENADINE\FEXOFENADINE HYDROCHLORIDE
     Indication: PRODUCT USED FOR UNKNOWN INDICATION
     Dosage: 360 MILLIGRAM DAILY;
     Route: 048
     Dates: start: 201812

REACTIONS (3)
  - Headache [Unknown]
  - Inappropriate schedule of product administration [Unknown]
  - Somnolence [Unknown]

NARRATIVE: CASE EVENT DATE: 201812
